FAERS Safety Report 5616658-5 (Version None)
Quarter: 2008Q1

REPORT INFORMATION
  Report Type: 
  Country: None (occurrence: None)
  Receive Date: 20080206
  Receipt Date: 20080206
  Transmission Date: 20080703
  Serious: No
  Sender: FDA-Public Use
  Company Number: None

PATIENT
  Age: 71 Year
  Sex: Male
  Weight: 95.2554 kg

DRUGS (2)
  1. LUPRON DEPOT [Suspect]
     Indication: PROSTATE CANCER
     Dosage: 7.5 MG  1 MONTH  IM
     Route: 030
     Dates: start: 20061209, end: 20070404
  2. LUPRON DEPOT [Suspect]
     Dosage: 22.5 MG  3 MONTHS  IM
     Route: 030
     Dates: start: 20070109, end: 20070629

REACTIONS (4)
  - CARDIAC DISORDER [None]
  - DYSPNOEA [None]
  - MUSCLE ATROPHY [None]
  - MYALGIA [None]
